FAERS Safety Report 12105685 (Version 2)
Quarter: 2017Q1

REPORT INFORMATION
  Report Type: Report from Study
  Country: DK (occurrence: DK)
  Receive Date: 20160223
  Receipt Date: 20170221
  Transmission Date: 20170428
  Serious: Yes (Hospitalization)
  Sender: FDA-Public Use
  Company Number: DK-PFIZER INC-2016099444

PATIENT

DRUGS (14)
  1. GABAPENTIN. [Suspect]
     Active Substance: GABAPENTIN
     Dosage: 400 MG, DAILY (AT 10:00 PM ON THE DAY OF SURGERY)
     Route: 048
  2. MORPHINE [Concomitant]
     Active Substance: MORPHINE
     Dosage: UNK, 1X/DAY (EVENING BEFORE GOING TO BED)
     Route: 048
  3. GABAPENTIN. [Suspect]
     Active Substance: GABAPENTIN
     Dosage: 1300 MG, DAILY (400 MG AT 8:00 AM AND 900 MG AT 10:00 PM)
     Route: 048
  4. ONDANSETRON [Concomitant]
     Active Substance: ONDANSETRON
     Indication: NAUSEA
     Dosage: 4 MG, UNK
  5. PROPOFOL. [Concomitant]
     Active Substance: PROPOFOL
     Dosage: 1-5 MG/KG/H
  6. GABAPENTIN. [Suspect]
     Active Substance: GABAPENTIN
     Indication: PROCEDURAL PAIN
     Dosage: 900 MG, DAILY (PREOPERATIVELY)
     Route: 048
  7. ZOLPIDEM [Concomitant]
     Active Substance: ZOLPIDEM\ZOLPIDEM TARTRATE
     Indication: SLEEP DISORDER
     Dosage: 5 MG, UNK
  8. SUFENTANIL [Concomitant]
     Active Substance: SUFENTANIL
     Dosage: UNK
     Route: 042
  9. ROPIVACAINE [Concomitant]
     Active Substance: ROPIVACAINE
     Indication: ANALGESIC THERAPY
     Dosage: 150 ML, UNK
  10. EPINEPHRINE. [Concomitant]
     Active Substance: EPINEPHRINE
     Dosage: 10 UG/ML, UNK
  11. ACETAMINOPHEN. [Concomitant]
     Active Substance: ACETAMINOPHEN
     Indication: ANALGESIC THERAPY
     Dosage: 2 G, 2X/DAY (REGULARLY AT 8 AM AND 10 PM)
     Route: 048
  12. CELECOXIB. [Concomitant]
     Active Substance: CELECOXIB
     Indication: ANALGESIC THERAPY
     Dosage: 200 MG, 2X/DAY (AT 8 AM AND 10 PM)
     Route: 048
  13. ONDANSETRON [Concomitant]
     Active Substance: ONDANSETRON
     Indication: VOMITING
  14. BUPIVACAINE. [Concomitant]
     Active Substance: BUPIVACAINE
     Indication: SPINAL ANAESTHESIA
     Dosage: UNK

REACTIONS (4)
  - Hypotension [Unknown]
  - Diplopia [Unknown]
  - Sedation [Unknown]
  - Dizziness [Unknown]
